FAERS Safety Report 5368019-4 (Version None)
Quarter: 2007Q2

REPORT INFORMATION
  Report Type: 
  Country: None (occurrence: None)
  Receive Date: 20070622
  Receipt Date: 20070611
  Transmission Date: 20071010
  Serious: Yes (Other)
  Sender: FDA-Public Use
  Company Number: US-PFIZER INC-2007048452

PATIENT
  Sex: Female
  Weight: 65.454 kg

DRUGS (11)
  1. TIKOSYN [Suspect]
     Indication: ATRIAL FIBRILLATION
  2. WARFARIN [Concomitant]
     Indication: ATRIAL FIBRILLATION
  3. METOPROLOL SUCCINATE [Concomitant]
  4. PROTONIX [Concomitant]
     Indication: GASTROOESOPHAGEAL REFLUX DISEASE
  5. XANAX [Concomitant]
     Indication: INSOMNIA
  6. ZANTAC [Concomitant]
  7. OGEN [Concomitant]
  8. MEDROXYPROGESTERONE [Concomitant]
  9. CENTRUM SILVER [Concomitant]
  10. B50 [Concomitant]
  11. ASPIRIN [Concomitant]
     Indication: ATRIAL FIBRILLATION

REACTIONS (6)
  - ANXIETY [None]
  - BURNING SENSATION [None]
  - FEELING ABNORMAL [None]
  - HYPOTENSION [None]
  - PAIN [None]
  - PALPITATIONS [None]
